FAERS Safety Report 5207354-7 (Version None)
Quarter: 2007Q1

REPORT INFORMATION
  Report Type: 
  Country: None (occurrence: None)
  Receive Date: 20070112
  Receipt Date: 20061218
  Transmission Date: 20070707
  Serious: Yes (Hospitalization)
  Sender: FDA-Public Use
  Company Number: CA-ROCHE-475886

PATIENT
  Age: 47 Year
  Sex: Male

DRUGS (4)
  1. FUZEON [Suspect]
     Route: 058
     Dates: start: 20050123, end: 20061015
  2. TIPRANAVIR [Concomitant]
     Route: 048
  3. TMC 125 [Concomitant]
     Dates: start: 20060615
  4. TMC114 [Concomitant]
     Dates: start: 20060615

REACTIONS (1)
  - DRUG RESISTANCE [None]
